FAERS Safety Report 22851690 (Version 3)
Quarter: 2023Q4

REPORT INFORMATION
  Report Type: Report from Study
  Country: PE (occurrence: PE)
  Receive Date: 20230823
  Receipt Date: 20231029
  Transmission Date: 20240110
  Serious: Yes (Hospitalization, Other)
  Sender: FDA-Public Use
  Company Number: PE-002147023-NVSC2022PE282446

PATIENT
  Age: 39 Year
  Sex: Female
  Weight: 83 kg

DRUGS (13)
  1. COSENTYX [Suspect]
     Active Substance: SECUKINUMAB
     Indication: Ankylosing spondylitis
     Dosage: 300 MG, QMO
     Route: 058
     Dates: start: 202004
  2. COSENTYX [Suspect]
     Active Substance: SECUKINUMAB
     Dosage: 300 MG, QMO
     Route: 058
     Dates: start: 202101
  3. COSENTYX [Suspect]
     Active Substance: SECUKINUMAB
     Dosage: 300 MG, QMO
     Route: 058
     Dates: start: 202207
  4. COSENTYX [Suspect]
     Active Substance: SECUKINUMAB
     Dosage: 150 MG, QMO
     Route: 058
     Dates: start: 202209
  5. COSENTYX [Suspect]
     Active Substance: SECUKINUMAB
     Dosage: 300 MG, QMO
     Route: 058
  6. COSENTYX [Suspect]
     Active Substance: SECUKINUMAB
     Dosage: 300 MG, QMO (150 MG, 2 DOSES)
     Route: 058
     Dates: start: 20230114
  7. COSENTYX [Suspect]
     Active Substance: SECUKINUMAB
     Dosage: 300 MG, QMO
     Route: 058
  8. COSENTYX [Suspect]
     Active Substance: SECUKINUMAB
     Dosage: UNK
     Route: 065
     Dates: start: 202307
  9. RIVAROXABAN [Suspect]
     Active Substance: RIVAROXABAN
     Indication: Product used for unknown indication
     Dosage: 20 MG
     Route: 065
  10. BISOPROLOL [Suspect]
     Active Substance: BISOPROLOL\BISOPROLOL FUMARATE
     Indication: Product used for unknown indication
     Dosage: 5 MG
     Route: 065
  11. ORFENADRINA [Concomitant]
     Indication: Product used for unknown indication
     Dosage: UNK
     Route: 065
  12. CLONAZEPAM [Concomitant]
     Active Substance: CLONAZEPAM
     Indication: Product used for unknown indication
     Dosage: 2 MG
     Route: 065
  13. PREGABALIN [Concomitant]
     Active Substance: PREGABALIN
     Indication: Product used for unknown indication
     Dosage: UNK
     Route: 065

REACTIONS (39)
  - Thrombophlebitis [Recovered/Resolved]
  - Gait disturbance [Unknown]
  - Arthralgia [Not Recovered/Not Resolved]
  - Migraine [Unknown]
  - Muscle rupture [Unknown]
  - Pain in extremity [Not Recovered/Not Resolved]
  - Ankylosing spondylitis [Unknown]
  - Thrombosis [Unknown]
  - Aphonia [Unknown]
  - Decreased immune responsiveness [Unknown]
  - Respiratory disorder [Not Recovered/Not Resolved]
  - Throat irritation [Unknown]
  - Nasal discomfort [Unknown]
  - Dyspnoea [Unknown]
  - Weight decreased [Unknown]
  - Dyspepsia [Unknown]
  - Bursitis [Unknown]
  - Joint effusion [Unknown]
  - Arthritis [Unknown]
  - Intervertebral disc disorder [Unknown]
  - Neuritis [Unknown]
  - Spondylitis [Unknown]
  - Osteoarthritis [Unknown]
  - Diarrhoea [Unknown]
  - Nasopharyngitis [Unknown]
  - Hypertension [Unknown]
  - Glucose tolerance impaired [Unknown]
  - Anxiety [Unknown]
  - Fear [Unknown]
  - Insomnia [Not Recovered/Not Resolved]
  - Pain [Not Recovered/Not Resolved]
  - Fibromyalgia [Not Recovered/Not Resolved]
  - Stress [Not Recovered/Not Resolved]
  - Sacral pain [Unknown]
  - Myalgia [Not Recovered/Not Resolved]
  - Bone pain [Not Recovered/Not Resolved]
  - Thrombophlebitis [Unknown]
  - Nausea [Unknown]
  - Peripheral swelling [Unknown]

NARRATIVE: CASE EVENT DATE: 20220601
